FAERS Safety Report 5101906-0 (Version None)
Quarter: 2006Q3

REPORT INFORMATION
  Report Type: 
  Country: None (occurrence: None)
  Receive Date: 20060907
  Receipt Date: 20060823
  Transmission Date: 20061208
  Serious: Yes (Hospitalization)
  Sender: FDA-Public Use
  Company Number: 2006S1007965

PATIENT
  Age: 35 Year
  Sex: Male

DRUGS (22)
  1. CLOZAPINE [Suspect]
     Indication: BIPOLAR DISORDER
     Dosage: 500 MG; X1; PO;  400 MG; QD, PO
     Route: 048
     Dates: start: 20060817, end: 20060817
  2. CLOZAPINE [Suspect]
     Indication: BIPOLAR DISORDER
     Dosage: 500 MG; X1; PO;  400 MG; QD, PO
     Route: 048
     Dates: start: 20060808, end: 20060820
  3. CLOZAPINE [Suspect]
     Indication: BIPOLAR DISORDER
     Dosage: PO
     Route: 048
  4. VITAMIN C (CON.) [Concomitant]
  5. ASPIRIN (CON.) [Concomitant]
  6. CETIRIZINE (CON.) [Concomitant]
  7. CLONAZEPAM (CON.) [Concomitant]
  8. VALPROATE SEMISODIUM (CON.) [Concomitant]
  9. EZETIMIBE (CON.) [Concomitant]
  10. FENOFIBRATE (CON.) [Concomitant]
  11. GLIPIZIDE (CON.) [Concomitant]
  12. FERRIC HYDROXIDE POLYMALTOSE COMPLEX (CON.) [Concomitant]
  13. LEVOTHYROXINE (CON.) [Concomitant]
  14. LISINOPRIL (CON.) [Concomitant]
  15. MULTIVIT (CON.) [Concomitant]
  16. PANTOPRAZOLE (CON.) [Concomitant]
  17. ROSIGLITAZONE (CON.) [Concomitant]
  18. SIMVASTATIN (CON.) [Concomitant]
  19. TEMAZEPAM (CON.) [Concomitant]
  20. TRIFLUOPERAZINE (CON.) [Concomitant]
  21. INSULIN HM MIXTARD (CON.) [Concomitant]
  22. PROPOXYPHENE NAPSYLATE AND ACETAMINOPHEN TABLETS, USP (CON.) [Concomitant]

REACTIONS (4)
  - CONDITION AGGRAVATED [None]
  - GRANULOCYTOPENIA [None]
  - MANIA [None]
  - PSYCHOTIC DISORDER [None]
